FAERS Safety Report 8569020-X (Version None)
Quarter: 2012Q3

REPORT INFORMATION
  Report Type: 
  Country: None (occurrence: None)
  Receive Date: 20120803
  Receipt Date: 20120424
  Transmission Date: 20120928
  Serious: No
  Sender: FDA-Public Use
  Company Number: US-ABBOTT-12P-163-0929389-00

PATIENT
  Sex: Female
  Weight: 104.42 kg

DRUGS (7)
  1. PROTONIX [Concomitant]
     Indication: PRODUCT USED FOR UNKNOWN INDICATION
  2. NIASPAN [Suspect]
     Indication: HIGH DENSITY LIPOPROTEIN DECREASED
  3. NIASPAN [Suspect]
     Indication: BLOOD TRIGLYCERIDES INCREASED
  4. ZONEGRAN [Concomitant]
     Indication: PRODUCT USED FOR UNKNOWN INDICATION
  5. BACLOFEN [Concomitant]
     Indication: PRODUCT USED FOR UNKNOWN INDICATION
  6. NIASPAN [Suspect]
     Indication: LOW DENSITY LIPOPROTEIN INCREASED
  7. NORVASC [Concomitant]
     Indication: PRODUCT USED FOR UNKNOWN INDICATION

REACTIONS (4)
  - PARAESTHESIA [None]
  - PRURITUS [None]
  - ERYTHEMA [None]
  - FLUSHING [None]
